FAERS Safety Report 21017613 (Version 1)
Quarter: 2022Q2

REPORT INFORMATION
  Report Type: Spontaneous
  Country: US (occurrence: US)
  Receive Date: 20220628
  Receipt Date: 20220628
  Transmission Date: 20220721
  Serious: Yes (Hospitalization)
  Sender: FDA-Public Use
  Company Number: US-GLENMARK PHARMACEUTICALS-2022GMK073101

PATIENT
  Age: 74 Year
  Sex: Female
  Weight: 63.6 kg

DRUGS (26)
  1. HYDRALAZINE HCL [Suspect]
     Active Substance: HYDRALAZINE HYDROCHLORIDE
     Indication: Hypertension
     Dosage: 25 MILLIGRAM, BID
     Route: 048
  2. ACYCLOVIR [Suspect]
     Active Substance: ACYCLOVIR
     Indication: Antiviral prophylaxis
     Dosage: 400 MILLIGRAM, BID
     Route: 048
  3. BORTEZOMIB [Interacting]
     Active Substance: BORTEZOMIB
     Indication: Plasma cell myeloma
     Dosage: 1.3 MILLIGRAM, (STARTING ON DAY 16 OF THE HOSPITALIZATION ON DAYS 1,4, AND 8
     Route: 058
  4. BORTEZOMIB [Interacting]
     Active Substance: BORTEZOMIB
     Dosage: 2.3 MILLIGRAM, (ON DAYS 1,4, AND 8
     Route: 058
  5. TIZANIDINE [Interacting]
     Active Substance: TIZANIDINE
     Indication: Pain
     Dosage: 2 MILLIGRAM, TID (DAY 9-DAY 11)
     Route: 048
  6. TIZANIDINE [Interacting]
     Active Substance: TIZANIDINE
     Indication: Muscle spasms
  7. DABIGATRAN [Concomitant]
     Active Substance: DABIGATRAN
     Indication: Atrial fibrillation
     Dosage: 150 MILLIGRAM, BID, (DAY 12 TO DAY 29)
     Route: 048
  8. LABETALOL [Concomitant]
     Active Substance: LABETALOL\LABETALOL HYDROCHLORIDE
     Indication: Hypertension
     Dosage: 200 MILLIGRAM, BID, (DAY 0-DAY 11)
     Route: 048
  9. LABETALOL [Concomitant]
     Active Substance: LABETALOL\LABETALOL HYDROCHLORIDE
     Dosage: 300 MILLIGRAM, BID, (DAY 11-DAY 19)
     Route: 048
  10. LABETALOL [Concomitant]
     Active Substance: LABETALOL\LABETALOL HYDROCHLORIDE
     Dosage: 200 MILLIGRAM, BID, (DAY 19-DAY 29)
     Route: 048
  11. ACETAMINOPHEN [Concomitant]
     Active Substance: ACETAMINOPHEN
     Indication: Pain
     Dosage: 325 MILLIGRAM, EVERY 4 HOURS, (DAY 2-DAY 14)
     Route: 048
  12. ACETAMINOPHEN [Concomitant]
     Active Substance: ACETAMINOPHEN
     Indication: Muscle spasms
  13. HYDROCODONE [Concomitant]
     Active Substance: HYDROCODONE
     Indication: Pain
     Dosage: 5 MILLIGRAM, QID, (DAY 2-DAY 14)
     Route: 048
  14. HYDROCODONE [Concomitant]
     Active Substance: HYDROCODONE
     Indication: Muscle spasms
  15. BACLOFEN [Concomitant]
     Active Substance: BACLOFEN
     Indication: Pain
     Dosage: 10 MILLIGRAM, TID, (DAY 14-DAY 21)
     Route: 048
  16. BACLOFEN [Concomitant]
     Active Substance: BACLOFEN
     Indication: Muscle spasms
  17. OXYCODONE [Concomitant]
     Active Substance: OXYCODONE
     Indication: Pain
     Dosage: 10 MILLIGRAM, TID, (DAY 19-DAY 29)
     Route: 048
  18. OXYCODONE [Concomitant]
     Active Substance: OXYCODONE
     Indication: Muscle spasms
     Dosage: 10 MILLIGRAM, EVERY 4 HOURS, (DAY 22-DAY 29)
     Route: 048
  19. METHADONE [Concomitant]
     Active Substance: METHADONE HYDROCHLORIDE
     Indication: Pain
     Dosage: 5 MILLIGRAM, QID, (DAY 10-DAY 29)
     Route: 048
  20. METHADONE [Concomitant]
     Active Substance: METHADONE HYDROCHLORIDE
     Indication: Muscle spasms
  21. LIDOCAINE [Concomitant]
     Active Substance: LIDOCAINE
     Indication: Pain
     Dosage: 1 DOSAGE FORM, QD, (DAY 14- DAY 19)
     Route: 062
  22. LIDOCAINE [Concomitant]
     Active Substance: LIDOCAINE
     Indication: Muscle spasms
  23. DEXAMETHASONE [Concomitant]
     Active Substance: DEXAMETHASONE
     Indication: Pain
     Dosage: 20 MILLIGRAM, QD
     Route: 042
  24. DEXAMETHASONE [Concomitant]
     Active Substance: DEXAMETHASONE
     Indication: Muscle spasms
     Dosage: 4 MILLIGRAM, QD, (DAY 16-DAY 20)
     Route: 042
  25. DEXAMETHASONE [Concomitant]
     Active Substance: DEXAMETHASONE
     Indication: Plasma cell myeloma
     Dosage: 4 MILLIGRAM, QID, (DAY 21-DAY 28)
     Route: 048
  26. PANTOPRAZOLE [Concomitant]
     Active Substance: PANTOPRAZOLE
     Indication: Gastrointestinal disorder prophylaxis
     Dosage: 40 MILLIGRAM, QD, (DAY 3-DAY 29)
     Route: 048

REACTIONS (3)
  - Drug level increased [Unknown]
  - Hepatic steatosis [Recovered/Resolved]
  - Drug interaction [Unknown]
